FAERS Safety Report 23468464 (Version 1)
Quarter: 2024Q1

REPORT INFORMATION
  Report Type: Spontaneous
  Country: AU (occurrence: AU)
  Receive Date: 20240202
  Receipt Date: 20240202
  Transmission Date: 20240409
  Serious: Yes (Other)
  Sender: FDA-Public Use
  Company Number: AU-TEVA-VS-3151253

PATIENT
  Age: 18 Year
  Sex: Female

DRUGS (7)
  1. LEFLUNOMIDE [Suspect]
     Active Substance: LEFLUNOMIDE
     Indication: Product used for unknown indication
     Route: 065
  2. PREDNISOLONE [Suspect]
     Active Substance: PREDNISOLONE
     Indication: Product used for unknown indication
     Route: 065
  3. AZATHIOPRINE [Concomitant]
     Active Substance: AZATHIOPRINE
  4. DAPSONE [Concomitant]
     Active Substance: DAPSONE
  5. MYCOPHENOLATE MOFETIL [Concomitant]
     Active Substance: MYCOPHENOLATE MOFETIL
  6. RITUXIMAB [Concomitant]
     Active Substance: RITUXIMAB
  7. METHOTREXATE [Suspect]
     Active Substance: METHOTREXATE
     Indication: Product used for unknown indication
     Route: 065

REACTIONS (7)
  - Colonic abscess [Unknown]
  - Cushingoid [Unknown]
  - Osteoporosis [Unknown]
  - Pseudomonal sepsis [Unknown]
  - Systemic lupus erythematosus [Unknown]
  - Rebound effect [Unknown]
  - Off label use [Unknown]
